FAERS Safety Report 5535831-8 (Version None)
Quarter: 2007Q4

REPORT INFORMATION
  Report Type: 
  Country: None (occurrence: None)
  Receive Date: 20071206
  Receipt Date: 20071203
  Transmission Date: 20080405
  Serious: Yes (Hospitalization)
  Sender: FDA-Public Use
  Company Number: D0055214A

PATIENT
  Age: 27 Year
  Sex: Female

DRUGS (2)
  1. LAMICTAL [Suspect]
     Route: 048
  2. INSIDON [Suspect]
     Route: 048

REACTIONS (4)
  - ACCIDENTAL EXPOSURE [None]
  - DIPLOPIA [None]
  - SOMNOLENCE [None]
  - TACHYCARDIA [None]
